FAERS Safety Report 9310431 (Version 2)
Quarter: 2013Q3

REPORT INFORMATION
  Report Type: Spontaneous
  Country: US (occurrence: US)
  Receive Date: 20130527
  Receipt Date: 20130722
  Transmission Date: 20140515
  Serious: No
  Sender: FDA-Public Use
  Company Number: US-PFIZER INC-2013155818

PATIENT
  Age: 79 Year
  Sex: Female
  Weight: 72.56 kg

DRUGS (7)
  1. FLUCONAZOLE [Suspect]
     Indication: CANDIDA INFECTION
     Dosage: 400 MG, DAILY
     Route: 048
  2. FLUCONAZOLE [Interacting]
     Dosage: 200 MG, ONCE A DAY FOR FIVE DAYS A WEEK
     Route: 048
  3. FLUCONAZOLE [Interacting]
     Dosage: 200 MG, DAILY  3 TIMES A WEEK
  4. CARDIZEM [Interacting]
     Dosage: 120 MG, DAILY
     Route: 048
  5. DIOVAN [Concomitant]
     Dosage: 160 MG, PER DAY
  6. CLARITIN [Concomitant]
     Dosage: UNK
  7. LEVOTHYROXINE [Concomitant]
     Dosage: UNK

REACTIONS (7)
  - Drug interaction [Recovered/Resolved]
  - Blood pressure increased [Recovered/Resolved]
  - Drug ineffective [Recovered/Resolved]
  - Drug effect delayed [Recovered/Resolved]
  - Hypothyroidism [Recovering/Resolving]
  - Breast cyst [Unknown]
  - Anaemia [Unknown]
